FAERS Safety Report 5734055-9 (Version None)
Quarter: 2008Q2

REPORT INFORMATION
  Report Type: 
  Country: None (occurrence: None)
  Receive Date: 20080509
  Receipt Date: 20080508
  Transmission Date: 20081010
  Serious: Yes (Other)
  Sender: FDA-Public Use
  Company Number: US-RB-3806-2006

PATIENT
  Sex: Female

DRUGS (4)
  1. SUBUTEX [Suspect]
     Indication: DRUG USE FOR UNKNOWN INDICATION
     Route: 060
     Dates: start: 20061102
  2. SUBOXONE [Suspect]
     Indication: DRUG USE FOR UNKNOWN INDICATION
     Route: 060
     Dates: start: 20060809, end: 20060818
  3. SUBOXONE [Suspect]
     Route: 060
     Dates: start: 20060819, end: 20060820
  4. SUBOXONE [Suspect]
     Route: 060
     Dates: start: 20060821, end: 20061101

REACTIONS (3)
  - ABORTION SPONTANEOUS [None]
  - AMENORRHOEA [None]
  - DRUG EXPOSURE DURING PREGNANCY [None]
